FAERS Safety Report 5050788-4 (Version None)
Quarter: 2006Q3

REPORT INFORMATION
  Report Type: 
  Country: None (occurrence: None)
  Receive Date: 20060710
  Receipt Date: 20060706
  Transmission Date: 20061208
  Serious: Yes (Other)
  Sender: FDA-Public Use
  Company Number: FRWYE001427JAN03

PATIENT
  Age: 65 Year
  Sex: Male

DRUGS (3)
  1. NEORAL [Suspect]
     Indication: PROPHYLAXIS AGAINST TRANSPLANT REJECTION
     Dosage: 100 MG DAILY AT THE TIME OF THE EVENT ONSET
     Route: 048
     Dates: start: 20021030
  2. CELLCEPT [Suspect]
     Indication: PROPHYLAXIS AGAINST TRANSPLANT REJECTION
     Dosage: 2 G 1X PER 1 DAY
     Route: 048
     Dates: start: 20021024
  3. CORTANCYL (PREDNISONE, 0) [Suspect]
     Indication: PROPHYLAXIS AGAINST TRANSPLANT REJECTION
     Dosage: 12.5 MG AT THE TIME OF THE EVENT ONSET
     Route: 048
     Dates: start: 20011024

REACTIONS (2)
  - CHOLESTASIS [None]
  - HEPATOTOXICITY [None]
